FAERS Safety Report 16944557 (Version 1)
Quarter: 2019Q4

REPORT INFORMATION
  Report Type: Spontaneous
  Country: US (occurrence: US)
  Receive Date: 20191022
  Receipt Date: 20191022
  Transmission Date: 20200122
  Serious: Yes (Hospitalization)
  Sender: FDA-Public Use
  Company Number: US-TORRENT-00009377

PATIENT
  Age: 77 Year
  Sex: Male

DRUGS (1)
  1. LOSARTAN. [Suspect]
     Active Substance: LOSARTAN
     Indication: HYPERTENSION
     Dosage: 8-10 YEARS

REACTIONS (2)
  - Adenocarcinoma of colon [Recovered/Resolved]
  - Colon operation [Unknown]

NARRATIVE: CASE EVENT DATE: 20190121
